FAERS Safety Report 6389002-6 (Version None)
Quarter: 2009Q4

REPORT INFORMATION
  Report Type: 
  Country: None (occurrence: None)
  Receive Date: 20091001
  Receipt Date: 20090915
  Transmission Date: 20100525
  Serious: Yes (Hospitalization, Disabling)
  Sender: FDA-Public Use
  Company Number: 2008S1007732

PATIENT
  Age: 63 Year
  Sex: Female
  Weight: 95.7 kg

DRUGS (14)
  1. PHOSPHOSODA FLAVOR NOT SPECIFIED [Suspect]
     Indication: COLONOSCOPY
     Dosage: PO
     Route: 048
     Dates: start: 20050815, end: 20050815
  2. DIOVAN HCT [Concomitant]
  3. PROTONIX /01263201/ [Concomitant]
  4. MULTI-VITAMINS [Concomitant]
  5. GINSENG /00480901/ [Concomitant]
  6. ASPIRIN [Concomitant]
  7. IBUPROFEN [Concomitant]
  8. VIACTIV /00751501/ [Concomitant]
  9. LIPITOR [Concomitant]
  10. VYTORIN [Concomitant]
  11. CONCERTA [Concomitant]
  12. TOPROL-XL [Concomitant]
  13. NABUMETONE [Concomitant]
  14. FLEET ENEMA (SODIUM PHOSPHATE) [Concomitant]

REACTIONS (5)
  - CHOLELITHIASIS [None]
  - HAEMODIALYSIS [None]
  - NEPHROCALCINOSIS [None]
  - RENAL FAILURE ACUTE [None]
  - RENAL TRANSPLANT [None]
